FAERS Safety Report 4809220-5 (Version None)
Quarter: 2005Q4

REPORT INFORMATION
  Report Type: 
  Country: None (occurrence: None)
  Receive Date: 20051021
  Receipt Date: 20051011
  Transmission Date: 20060501
  Serious: Yes (Other)
  Sender: FDA-Public Use
  Company Number: 218513

PATIENT
  Age: 61 Year
  Sex: 0

DRUGS (10)
  1. RITUXAN [Suspect]
     Indication: NON-HODGKIN'S LYMPHOMA
     Dosage: 620 MG, INTRAVENOUS
     Route: 042
     Dates: start: 20041001, end: 20050119
  2. CYCLOPHOSPHAMIDE [Suspect]
     Indication: LYMPHOMA
     Dosage: 1235 MG, INTRAVENOUS
     Route: 042
     Dates: start: 20040924, end: 20050112
  3. DOXORUBICIN HCL [Suspect]
     Indication: LYMPHOMA
     Dosage: 85 MG, INTRAVENOUS
     Route: 042
     Dates: start: 20040924, end: 20050112
  4. VINCRISTINE [Suspect]
     Indication: LYMPHOMA
     Dosage: 2 MG, INTRAVENOUS
     Route: 042
     Dates: start: 20040924, end: 20050112
  5. PREDISOLONE [Suspect]
     Indication: LYMPHOMA
     Dosage: 100 MG, INTRAVENOUS
     Route: 042
     Dates: start: 20040924, end: 20050112
  6. BRUFEN (IBUPROFEN) [Concomitant]
  7. POLARAMINE [Concomitant]
  8. ALLOPURINOL [Concomitant]
  9. DIFLUCAN [Concomitant]
  10. COTRIM [Concomitant]

REACTIONS (2)
  - NEUTROPHIL COUNT DECREASED [None]
  - WHITE BLOOD CELL COUNT DECREASED [None]
